FAERS Safety Report 25940491 (Version 1)
Quarter: 2025Q4

REPORT INFORMATION
  Report Type: Spontaneous
  Country: US (occurrence: None)
  Receive Date: 20251017
  Receipt Date: 20251017
  Transmission Date: 20260118
  Serious: Yes (Hospitalization)
  Sender: FDA-CTU
  Company Number: None

PATIENT
  Age: 66 Year
  Sex: Male

DRUGS (7)
  1. GENVOYA [Suspect]
     Active Substance: COBICISTAT\ELVITEGRAVIR\EMTRICITABINE\TENOFOVIR ALAFENAMIDE FUMARATE
     Indication: HIV infection
     Dosage: FREQUENCY : DAILY;?
     Route: 048
     Dates: start: 20240223
  2. Carbidopa/Levodopa 25-100mg [Concomitant]
  3. FINASTERIDE [Concomitant]
     Active Substance: FINASTERIDE
  4. Fluticasone 50mcg nasal [Concomitant]
  5. FUROSEMIDE [Concomitant]
     Active Substance: FUROSEMIDE
  6. MONTELUKAST SODIUM [Concomitant]
     Active Substance: MONTELUKAST SODIUM
  7. TESTOSTERONE [Concomitant]
     Active Substance: TESTOSTERONE

REACTIONS (2)
  - Cellulitis [None]
  - Skin laceration [None]

NARRATIVE: CASE EVENT DATE: 20251015
